FAERS Safety Report 16070630 (Version 1)
Quarter: 2019Q1

REPORT INFORMATION
  Report Type: Report from Study
  Country: CN (occurrence: CN)
  Receive Date: 20190314
  Receipt Date: 20190314
  Transmission Date: 20190418
  Serious: Yes (Other)
  Sender: FDA-Public Use
  Company Number: CN-ROCHE-2280298

PATIENT

DRUGS (9)
  1. EPIRUBICIN [Suspect]
     Active Substance: EPIRUBICIN
     Indication: B-CELL LYMPHOMA
     Dosage: 15 MG/M2 OVER 24 HOURS DAY 1-4 IN R-EPOCH AND 60-80 MG/M2 ON DAY 1 IN R-COEP
     Route: 042
  2. CYCLOPHOSPHAMIDE. [Suspect]
     Active Substance: CYCLOPHOSPHAMIDE
     Indication: B-CELL LYMPHOMA
     Dosage: DAY 5 IN R-EPOCH AND DAY 1 IN R-CEOP GROUP
     Route: 042
  3. VINDESINE [Suspect]
     Active Substance: VINDESINE
     Indication: B-CELL LYMPHOMA
     Dosage: DAY 1
     Route: 042
  4. SODIUM BICARBONATE. [Concomitant]
     Active Substance: SODIUM BICARBONATE
     Route: 041
  5. PROMETHAZINE [Concomitant]
     Active Substance: PROMETHAZINE\PROMETHAZINE HYDROCHLORIDE
     Route: 048
  6. RITUXIMAB. [Suspect]
     Active Substance: RITUXIMAB
     Indication: B-CELL LYMPHOMA
     Dosage: DAY 0 IN BOTH GROUPS
     Route: 042
  7. VINCRISTINE [Suspect]
     Active Substance: VINCRISTINE
     Indication: B-CELL LYMPHOMA
     Dosage: OVER 24 HOURS DAY 1-4 IN R-EPOCH
     Route: 042
  8. ETOPOSIDE. [Suspect]
     Active Substance: ETOPOSIDE
     Indication: B-CELL LYMPHOMA
     Dosage: 50 MG/M2 OVER 24 HOURS DAY 1-4 IN R-EPOCH
     Route: 042
  9. DEXAMETHASONE. [Suspect]
     Active Substance: DEXAMETHASONE
     Indication: B-CELL LYMPHOMA
     Dosage: 15 MG DAY 1-5 IN R-EPOCH AND 10-15 MG DAY 1-5 IN R-COEP GROUP
     Route: 042

REACTIONS (6)
  - Fungal infection [Unknown]
  - Sepsis [Unknown]
  - Bone marrow failure [Unknown]
  - Pulmonary mycosis [Unknown]
  - Infection [Unknown]
  - Liver injury [Unknown]
